FAERS Safety Report 13907479 (Version 1)
Quarter: 2017Q3

REPORT INFORMATION
  Report Type: Spontaneous
  Country: US (occurrence: US)
  Receive Date: 20170825
  Receipt Date: 20170825
  Transmission Date: 20171127
  Serious: No
  Sender: FDA-Public Use
  Company Number: US-ROCHE-1021136

PATIENT
  Sex: Female
  Weight: 35.73 kg

DRUGS (1)
  1. NUTROPIN AQ [Suspect]
     Active Substance: SOMATROPIN
     Indication: GROWTH RETARDATION
     Route: 065
     Dates: start: 20110909

REACTIONS (3)
  - Unevaluable event [Recovering/Resolving]
  - Distractibility [Unknown]
  - Anger [Unknown]
